FAERS Safety Report 4999909-X (Version None)
Quarter: 2006Q2

REPORT INFORMATION
  Report Type: 
  Country: None (occurrence: None)
  Receive Date: 20060509
  Receipt Date: 20060425
  Transmission Date: 20061013
  Serious: Yes (Other)
  Sender: FDA-Public Use
  Company Number: DE200604003779

PATIENT
  Age: 50 Year
  Sex: Female
  Weight: 52 kg

DRUGS (3)
  1. DULOXETINE HYDROCHLORIDE (DULOXETINE HYDROCHLORIDE) CAPSULE [Suspect]
     Indication: DEPRESSION
     Dosage: 30 MG, DAILY (1/D); ORAL; 60 MG, DAILY (1/D); ORAL
     Route: 048
     Dates: start: 20060201, end: 20060322
  2. DULOXETINE HYDROCHLORIDE (DULOXETINE HYDROCHLORIDE) CAPSULE [Suspect]
     Indication: DEPRESSION
     Dosage: 30 MG, DAILY (1/D); ORAL; 60 MG, DAILY (1/D); ORAL
     Route: 048
     Dates: start: 20060323, end: 20060420
  3. DICLOFENAC ^RATIOPHARM^ (DICLOFENAC SODIUM) [Concomitant]

REACTIONS (5)
  - DRUG INTERACTION [None]
  - JEALOUS DELUSION [None]
  - LIBIDO INCREASED [None]
  - PARANOIA [None]
  - WEIGHT DECREASED [None]
